FAERS Safety Report 8472760-4 (Version None)
Quarter: 2012Q2

REPORT INFORMATION
  Report Type: 
  Country: None (occurrence: None)
  Receive Date: 20120627
  Receipt Date: 20120621
  Transmission Date: 20120825
  Serious: Yes (Other)
  Sender: FDA-Public Use
  Company Number: PHHO2012BR004559

PATIENT
  Sex: Female

DRUGS (3)
  1. BELATACEPT [Suspect]
     Indication: RENAL TRANSPLANT
     Dosage: 275 MG, UNK
     Route: 042
     Dates: start: 20070115
  2. PREDNISONE TAB [Suspect]
     Indication: RENAL TRANSPLANT
     Dosage: 5 MG, QD
     Dates: start: 20110822
  3. MYFORTIC [Suspect]
     Indication: RENAL TRANSPLANT
     Dosage: 500 MG, BID
     Dates: start: 20110408

REACTIONS (2)
  - BASAL CELL CARCINOMA [None]
  - BOWEN'S DISEASE [None]
